FAERS Safety Report 6142383-0 (Version None)
Quarter: 2009Q2

REPORT INFORMATION
  Report Type: 
  Country: None (occurrence: None)
  Receive Date: 20090403
  Receipt Date: 20071127
  Transmission Date: 20091009
  Serious: Yes (Hospitalization, Other)
  Sender: FDA-Public Use
  Company Number: US-ASTRAZENECA-2006UW27470

PATIENT
  Age: 19330 Day
  Sex: Male
  Weight: 63.6 kg

DRUGS (22)
  1. SEROQUEL [Suspect]
     Indication: DEPRESSION
     Route: 048
  2. SEROQUEL [Suspect]
     Indication: BIPOLAR DISORDER
     Route: 048
  3. SEROQUEL [Suspect]
     Route: 048
     Dates: start: 20060203, end: 20060203
  4. SEROQUEL [Suspect]
     Route: 048
     Dates: start: 20060203, end: 20060203
  5. SEROQUEL [Suspect]
     Dosage: 50-400 MG
     Route: 048
     Dates: start: 20060201
  6. SEROQUEL [Suspect]
     Dosage: 50-400 MG
     Route: 048
     Dates: start: 20060201
  7. INSULIN [Concomitant]
  8. RISPERDAL [Concomitant]
  9. CALCIUM [Concomitant]
  10. WELLBUTRIN [Concomitant]
  11. RENAGEL [Concomitant]
  12. SENSIPAR [Concomitant]
  13. ROZEREM [Concomitant]
  14. VITAMIN D [Concomitant]
  15. LOPRESSOR [Concomitant]
  16. FOSRENOL [Concomitant]
  17. VICODIN [Concomitant]
  18. GLUCAGON [Concomitant]
  19. VANCOMYCIN HCL [Concomitant]
  20. ZYPREXA [Concomitant]
  21. ZEMPLAR [Concomitant]
  22. EPOGEN [Concomitant]

REACTIONS (20)
  - ABDOMINAL DISTENSION [None]
  - ASCITES [None]
  - BLISTER [None]
  - CATHETER SEPSIS [None]
  - COGNITIVE DISORDER [None]
  - CONVULSION [None]
  - DEPRESSION [None]
  - DIABETES MELLITUS [None]
  - FISTULA [None]
  - HAEMORRHAGE [None]
  - HYPERGLYCAEMIA [None]
  - HYPOGLYCAEMIA [None]
  - PAIN IN EXTREMITY [None]
  - PANCREATITIS [None]
  - PANCREATITIS CHRONIC [None]
  - RENAL FAILURE CHRONIC [None]
  - SUICIDAL IDEATION [None]
  - VENOUS STENOSIS [None]
  - VISUAL ACUITY REDUCED [None]
  - VOMITING [None]
